FAERS Safety Report 6489727-8 (Version None)
Quarter: 2009Q4

REPORT INFORMATION
  Report Type: 
  Country: None (occurrence: None)
  Receive Date: 20091207
  Receipt Date: 20091123
  Transmission Date: 20100525
  Serious: Yes (Hospitalization, Other)
  Sender: FDA-Public Use
  Company Number: 2009AC000196

PATIENT
  Age: 94 Year
  Sex: Female

DRUGS (12)
  1. DIGOXIN [Suspect]
     Dosage: 0.125 MG;QD;PO
     Route: 048
     Dates: start: 20070111, end: 20080401
  2. ASPIRIN [Concomitant]
  3. COREG [Concomitant]
  4. DEMADEX [Concomitant]
  5. POTASSIUM CHLORIDE [Concomitant]
  6. MULTI-VITAMIN [Concomitant]
  7. CEREFOLIN [Concomitant]
  8. VITAMIN B-12 [Concomitant]
  9. SUPER B COMPLEX [Concomitant]
  10. TORSEMIDE [Concomitant]
  11. CENTRUM [Concomitant]
  12. CARVEDILOL [Concomitant]

REACTIONS (30)
  - ABDOMINAL PAIN [None]
  - ANXIETY [None]
  - AORTIC CALCIFICATION [None]
  - AORTIC STENOSIS [None]
  - ASPIRATION [None]
  - ATRIAL FIBRILLATION [None]
  - BACK PAIN [None]
  - CARDIAC FAILURE CONGESTIVE [None]
  - CARDIAC VALVE DISEASE [None]
  - CEREBRAL ATROPHY [None]
  - CONFUSIONAL STATE [None]
  - CYST [None]
  - DILATATION ATRIAL [None]
  - DIVERTICULUM [None]
  - ECONOMIC PROBLEM [None]
  - EMOTIONAL DISTRESS [None]
  - FALL [None]
  - HYPOKALAEMIA [None]
  - MITRAL VALVE INCOMPETENCE [None]
  - MULTIPLE INJURIES [None]
  - MUSCULOSKELETAL DISCOMFORT [None]
  - PULMONARY HYPERTENSION [None]
  - RENAL FAILURE [None]
  - SICK SINUS SYNDROME [None]
  - SOMNOLENCE [None]
  - SYNCOPE [None]
  - THERAPEUTIC AGENT TOXICITY [None]
  - TREMOR [None]
  - TRICUSPID VALVE INCOMPETENCE [None]
  - URINARY TRACT INFECTION [None]
